FAERS Safety Report 7686419-4 (Version None)
Quarter: 2011Q3

REPORT INFORMATION
  Report Type: 
  Country: None (occurrence: None)
  Receive Date: 20110816
  Receipt Date: 20110803
  Transmission Date: 20111222
  Serious: Yes (Hospitalization)
  Sender: FDA-Public Use
  Company Number: FR-SANOFI-AVENTIS-2011SA049579

PATIENT
  Age: 41 Year
  Sex: Female

DRUGS (4)
  1. METHYLPREDNISOLONE [Concomitant]
     Indication: PREMEDICATION
     Route: 041
     Dates: start: 20110413, end: 20110413
  2. ELOXATIN [Suspect]
     Indication: OVARIAN CANCER
     Route: 041
     Dates: start: 20110413, end: 20110413
  3. GEMZAR [Concomitant]
     Indication: OVARIAN CANCER
     Route: 041
     Dates: start: 20110413, end: 20110413
  4. ONDANSERTRON HYDROCHLORIDE [Concomitant]
     Indication: PREMEDICATION
     Route: 048
     Dates: start: 20110413, end: 20110413

REACTIONS (3)
  - DYSAESTHESIA [None]
  - RESPIRATORY DISTRESS [None]
  - PARAESTHESIA [None]
